FAERS Safety Report 7218895-5 (Version None)
Quarter: 2011Q1

REPORT INFORMATION
  Report Type: 
  Country: None (occurrence: None)
  Receive Date: 20110110
  Receipt Date: 20110104
  Transmission Date: 20110831
  Serious: Yes (Hospitalization)
  Sender: FDA-Public Use
  Company Number: US-MERCK-1101USA00098

PATIENT
  Age: 77 Year
  Sex: Female

DRUGS (1)
  1. DECADRON [Suspect]
     Indication: MULTIPLE MYELOMA
     Route: 048
     Dates: start: 20100406, end: 20100615

REACTIONS (4)
  - CONJUNCTIVITIS [None]
  - CONFUSIONAL STATE [None]
  - IMMUNOSUPPRESSION [None]
  - PNEUMONIA [None]
